FAERS Safety Report 9092737 (Version 1)
Quarter: 2013Q1

REPORT INFORMATION
  Report Type: Report from Study
  Country: US (occurrence: US)
  Receive Date: 20130131
  Receipt Date: 20130131
  Transmission Date: 20140127
  Serious: No
  Sender: FDA-Public Use
  Company Number: US-ABBOTT-12P-163-1002849-00

PATIENT
  Sex: Male
  Weight: 98.97 kg

DRUGS (3)
  1. HUMIRA [Suspect]
     Indication: PSORIASIS
     Route: 058
     Dates: start: 201111, end: 201205
  2. HUMIRA [Suspect]
     Indication: PSORIATIC ARTHROPATHY
     Route: 058
     Dates: start: 20121026
  3. INH [Suspect]
     Indication: TUBERCULIN TEST POSITIVE
     Dates: start: 201110, end: 201204

REACTIONS (1)
  - Hepatic enzyme increased [Recovering/Resolving]
